FAERS Safety Report 18063884 (Version 1)
Quarter: 2020Q3

REPORT INFORMATION
  Report Type: Spontaneous
  Country: US (occurrence: US)
  Receive Date: 20200724
  Receipt Date: 20200724
  Transmission Date: 20201103
  Serious: Yes (Other)
  Sender: FDA-Public Use
  Company Number: US-MACLEODS PHARMACEUTICALS US LTD-MAC2020027406

PATIENT

DRUGS (4)
  1. QUETIAPINE 300 MG [Suspect]
     Active Substance: QUETIAPINE
     Indication: AFFECTIVE DISORDER
     Dosage: 300 MILLIGRAM, QD, EVERY BEDTIME
     Route: 065
  2. DULOXETINE. [Concomitant]
     Active Substance: DULOXETINE
     Indication: PRODUCT USED FOR UNKNOWN INDICATION
     Dosage: 120 MILLIGRAM, QD
     Route: 065
  3. VALPROATE SEMISODIUM [Concomitant]
     Active Substance: DIVALPROEX SODIUM
     Indication: PRODUCT USED FOR UNKNOWN INDICATION
     Dosage: 2000 MILLIGRAM, QD, EVERY BEDTIME
     Route: 065
  4. AMFETAMINE/DEXAMETAMINE [Concomitant]
     Indication: PRODUCT USED FOR UNKNOWN INDICATION
     Dosage: 20 MILLIGRAM, TID
     Route: 065

REACTIONS (5)
  - Sleep-related eating disorder [Recovered/Resolved]
  - Weight increased [Unknown]
  - Choking [Unknown]
  - Restless legs syndrome [Recovered/Resolved]
  - Somnambulism [Recovered/Resolved]
